FAERS Safety Report 24991527 (Version 1)
Quarter: 2025Q1

REPORT INFORMATION
  Report Type: Spontaneous
  Country: JP (occurrence: JP)
  Receive Date: 20250220
  Receipt Date: 20250220
  Transmission Date: 20250409
  Serious: Yes (Hospitalization, Other)
  Sender: UCB
  Company Number: JP-UCBJ-CD202502225UCBPHAPROD

PATIENT
  Age: 6 Year
  Sex: Male

DRUGS (8)
  1. VIMPAT [Suspect]
     Active Substance: LACOSAMIDE
     Indication: Lennox-Gastaut syndrome
     Route: 048
  2. VIMPAT [Suspect]
     Active Substance: LACOSAMIDE
     Indication: Off label use
  3. VALPROATE SODIUM [Concomitant]
     Active Substance: VALPROATE SODIUM
     Indication: Lennox-Gastaut syndrome
     Route: 048
  4. PERAMPANEL [Concomitant]
     Active Substance: PERAMPANEL
     Indication: Lennox-Gastaut syndrome
     Route: 048
  5. TOPIRAMATE [Concomitant]
     Active Substance: TOPIRAMATE
     Indication: Lennox-Gastaut syndrome
     Route: 048
  6. TOPIRAMATE [Concomitant]
     Active Substance: TOPIRAMATE
     Route: 048
  7. RUFINAMIDE [Concomitant]
     Active Substance: RUFINAMIDE
     Indication: Lennox-Gastaut syndrome
     Route: 048
  8. MIDAZOLAM [Concomitant]
     Active Substance: MIDAZOLAM
     Indication: Lennox-Gastaut syndrome
     Dosage: 0.12 MILLIGRAM/KILOGRAM, HOURLY
     Route: 041

REACTIONS (7)
  - Seizure cluster [Unknown]
  - Status epilepticus [Unknown]
  - Pneumonia [Unknown]
  - Motor dysfunction [Unknown]
  - Gait disturbance [Unknown]
  - Hypophagia [Unknown]
  - Off label use [Unknown]
